FAERS Safety Report 13896849 (Version 1)
Quarter: 2017Q3

REPORT INFORMATION
  Report Type: Spontaneous
  Country: US (occurrence: US)
  Receive Date: 20170821
  Receipt Date: 20170821
  Transmission Date: 20171127
  Serious: Yes (Hospitalization)
  Sender: FDA-Public Use
  Company Number: None

PATIENT
  Age: 76 Year
  Sex: Female
  Weight: 69.75 kg

DRUGS (13)
  1. POTASSIUM GLUCONATE [Concomitant]
     Active Substance: POTASSIUM GLUCONATE
  2. GLUCOSAMINE/CHONDROITIN/MSM [Concomitant]
  3. VITAMIN D3 [Concomitant]
     Active Substance: CHOLECALCIFEROL
  4. MAGNESIUM BISGLYCINATE [Concomitant]
  5. FISH OIL [Concomitant]
     Active Substance: FISH OIL
  6. PANTOPRAZOLE [Concomitant]
     Active Substance: PANTOPRAZOLE
  7. MELATONIN [Concomitant]
     Active Substance: MELATONIN
  8. ETOPOSIDE. [Suspect]
     Active Substance: ETOPOSIDE
     Indication: LUNG NEOPLASM MALIGNANT
     Dosage: OTHER FREQUENCY:DAILY FOR 3 DAYS;?
     Route: 048
     Dates: start: 20170628, end: 20170821
  9. TRAMADOL. [Concomitant]
     Active Substance: TRAMADOL
  10. QUINAPRIL. [Concomitant]
     Active Substance: QUINAPRIL
  11. TOLTERODINE [Concomitant]
     Active Substance: TOLTERODINE
  12. ALEVE [Concomitant]
     Active Substance: NAPROXEN SODIUM
  13. APAP [Concomitant]
     Active Substance: ACETAMINOPHEN

REACTIONS (2)
  - Loss of consciousness [None]
  - Disease progression [None]
